FAERS Safety Report 19926944 (Version 1)
Quarter: 2021Q4

REPORT INFORMATION
  Report Type: Spontaneous
  Country: US (occurrence: US)
  Receive Date: 20211006
  Receipt Date: 20211006
  Transmission Date: 20220303
  Serious: No
  Sender: FDA-Public Use
  Company Number: 2021A732996

PATIENT
  Age: 28779 Day
  Sex: Female
  Weight: 52.6 kg

DRUGS (3)
  1. BREZTRI [Suspect]
     Active Substance: BUDESONIDE\FORMOTEROL\GLYCOPYRROLATE
     Indication: Emphysema
     Dosage: 160 MCG/9 MCG/4.8 MCG 2 INHALATIONS TWICE DAILY
     Route: 055
     Dates: start: 20210815, end: 20210914
  2. SYMBICORT [Suspect]
     Active Substance: BUDESONIDE\FORMOTEROL FUMARATE DIHYDRATE
     Indication: Emphysema
     Dosage: 160 MCG/4.5 MCG 2 INHALATIONS TWICE DAILY
     Route: 055
     Dates: start: 202101, end: 20210814
  3. SYMBICORT [Suspect]
     Active Substance: BUDESONIDE\FORMOTEROL FUMARATE DIHYDRATE
     Indication: Emphysema
     Dosage: 160 MCG/4.5 MCG 2 INHALATIONS TWICE DAILY
     Route: 055
     Dates: start: 20210915

REACTIONS (3)
  - Vision blurred [Not Recovered/Not Resolved]
  - Lacrimation increased [Not Recovered/Not Resolved]
  - Dizziness [Not Recovered/Not Resolved]

NARRATIVE: CASE EVENT DATE: 20210906
